FAERS Safety Report 6457397-0 (Version None)
Quarter: 2009Q4

REPORT INFORMATION
  Report Type: 
  Country: None (occurrence: None)
  Receive Date: 20091125
  Receipt Date: 20091118
  Transmission Date: 20100525
  Serious: Yes (Other)
  Sender: FDA-Public Use
  Company Number: US-PFIZER INC-2009300183

PATIENT

DRUGS (1)
  1. NICOTROL [Suspect]

REACTIONS (1)
  - INTENTIONAL DRUG MISUSE [None]
